FAERS Safety Report 8032890-8 (Version None)
Quarter: 2011Q4

REPORT INFORMATION
  Report Type: 
  Country: None (occurrence: None)
  Receive Date: 20111223
  Receipt Date: 20111212
  Transmission Date: 20120403
  Serious: Yes (Other)
  Sender: FDA-Public Use
  Company Number: US-1189431

PATIENT
  Age: 78 Year
  Sex: Female

DRUGS (1)
  1. BSS [Suspect]
     Indication: CATARACT OPERATION
     Dosage: INTRAOCULAR
     Route: 031
     Dates: start: 20111208

REACTIONS (1)
  - TOXIC ANTERIOR SEGMENT SYNDROME [None]
